FAERS Safety Report 4970612-5 (Version None)
Quarter: 2006Q2

REPORT INFORMATION
  Report Type: 
  Country: None (occurrence: None)
  Receive Date: 20060412
  Receipt Date: 20011003
  Transmission Date: 20061013
  Serious: Yes (Hospitalization)
  Sender: FDA-Public Use
  Company Number: US-MERCK-01100589

PATIENT
  Age: 74 Year
  Sex: Female
  Weight: 59 kg

DRUGS (7)
  1. VIOXX [Suspect]
     Indication: NECK PAIN
     Route: 048
     Dates: start: 20001205, end: 20040128
  2. VIOXX [Suspect]
     Route: 048
     Dates: start: 20001205, end: 20040128
  3. VIOXX [Suspect]
     Route: 048
     Dates: start: 20001205, end: 20040128
  4. VIOXX [Suspect]
     Indication: CHEST PAIN
     Route: 048
     Dates: start: 20001205, end: 20040128
  5. VIOXX [Suspect]
     Route: 048
     Dates: start: 20001205, end: 20040128
  6. VIOXX [Suspect]
     Route: 048
     Dates: start: 20001205, end: 20040128
  7. ASPIRIN [Concomitant]
     Route: 065

REACTIONS (15)
  - ANGINA UNSTABLE [None]
  - ANXIETY DISORDER [None]
  - ARTERIAL STENOSIS [None]
  - BUNDLE BRANCH BLOCK LEFT [None]
  - CATHETER SITE HAEMORRHAGE [None]
  - CEREBROVASCULAR ACCIDENT [None]
  - CHEST PAIN [None]
  - DIZZINESS [None]
  - HAEMATOCRIT DECREASED [None]
  - HYPERVENTILATION [None]
  - PARAESTHESIA [None]
  - PERICARDITIS [None]
  - PRESCRIBED OVERDOSE [None]
  - RETROPERITONEAL HAEMORRHAGE [None]
  - TRANSIENT ISCHAEMIC ATTACK [None]
